FAERS Safety Report 4334681-8 (Version None)
Quarter: 2004Q1

REPORT INFORMATION
  Report Type: 
  Country: None (occurrence: None)
  Receive Date: 20040329
  Receipt Date: 20031209
  Transmission Date: 20041129
  Serious: No
  Sender: FDA-Public Use
  Company Number: 03P-163-0244328

PATIENT
  Sex: Female

DRUGS (11)
  1. HUMIRA [Suspect]
     Indication: RHEUMATOID ARTHRITIS
     Dosage: SEE IMAGE
     Route: 058
     Dates: start: 20030601, end: 20031001
  2. HUMIRA [Suspect]
     Indication: RHEUMATOID ARTHRITIS
     Dosage: SEE IMAGE
     Route: 058
     Dates: start: 20031001
  3. LEFLUNOMIDE [Concomitant]
  4. HYDROXYCHLOROQUINE PHOSPHATE [Concomitant]
  5. LEVOTHYROXINE SODIUM [Concomitant]
  6. CYCLOBENZAPRINE HYDROCHLORIDE [Concomitant]
  7. ALPRAZOLAM [Concomitant]
  8. VICODIN [Concomitant]
  9. INSULIN GLARGINE [Concomitant]
  10. INSULIN [Concomitant]
  11. INFLUENZA VACCINE [Concomitant]

REACTIONS (3)
  - INJECTION SITE NODULE [None]
  - INJECTION SITE PAIN [None]
  - RASH [None]
